FAERS Safety Report 7038561-9 (Version None)
Quarter: 2010Q4

REPORT INFORMATION
  Report Type: 
  Country: None (occurrence: None)
  Receive Date: 20101011
  Receipt Date: 20100929
  Transmission Date: 20110411
  Serious: Yes (Other)
  Sender: FDA-Public Use
  Company Number: US-PFIZER INC-2010124461

PATIENT
  Sex: Female
  Weight: 58.957 kg

DRUGS (4)
  1. TOVIAZ [Suspect]
     Indication: CYSTITIS INTERSTITIAL
     Dosage: 4 MG, DAILY
     Route: 048
     Dates: start: 20090101
  2. ELMIRON [Concomitant]
     Indication: BLADDER DISORDER
     Dosage: UNK
  3. SYNTHROID [Concomitant]
     Indication: THYROID DISORDER
     Dosage: UNK
  4. WARFARIN [Concomitant]
     Indication: ATRIAL FIBRILLATION
     Dosage: UNK

REACTIONS (1)
  - CYSTITIS [None]
